FAERS Safety Report 6721641-2 (Version None)
Quarter: 2010Q2

REPORT INFORMATION
  Report Type: 
  Country: None (occurrence: None)
  Receive Date: 20100510
  Receipt Date: 20100426
  Transmission Date: 20101027
  Serious: Yes (Life-Threatening, Other)
  Sender: FDA-Public Use
  Company Number: 010765

PATIENT
  Sex: Female
  Weight: 93.4 kg

DRUGS (9)
  1. LACOSAMIDE [Suspect]
     Indication: CONVULSION
     Dosage: (100 MG BID, FIRST DOSE AT 1 AM AND SECOND DOSE AT 1 PM, SINCE 5 MONTHS, ORAL)
     Route: 048
     Dates: start: 20100101
  2. KEPPRA [Suspect]
     Indication: CONVULSION
     Dosage: (STARTED 2-3 YEARS AGO ORAL)
     Route: 048
  3. DESVENLAFAXIN [Suspect]
     Indication: PAIN
     Dosage: (50 MG QD, STARTED 4 MONTHS AGO ORAL)
     Route: 048
  4. TOPAMAX [Concomitant]
  5. DETROL /01350201/ [Concomitant]
  6. NAPROXEN [Concomitant]
  7. NEXIUM [Concomitant]
  8. ALLEGRA [Concomitant]
  9. AMBIEN [Concomitant]

REACTIONS (19)
  - ABNORMAL BEHAVIOUR [None]
  - ABNORMAL DREAMS [None]
  - AGGRESSION [None]
  - ANGER [None]
  - CHEST DISCOMFORT [None]
  - DEPRESSED MOOD [None]
  - DRUG INTERACTION [None]
  - FEELING OF DESPAIR [None]
  - FLATULENCE [None]
  - HALLUCINATION [None]
  - HYPOAESTHESIA [None]
  - INFLAMMATION [None]
  - PAIN [None]
  - PERICARDIAL DISEASE [None]
  - PERSONALITY CHANGE [None]
  - RIB FRACTURE [None]
  - STRESS URINARY INCONTINENCE [None]
  - SUICIDAL IDEATION [None]
  - WEIGHT INCREASED [None]
